FAERS Safety Report 6749020-2 (Version None)
Quarter: 2010Q2

REPORT INFORMATION
  Report Type: 
  Country: None (occurrence: None)
  Receive Date: 20100601
  Receipt Date: 20100524
  Transmission Date: 20101027
  Serious: Yes (Death)
  Sender: FDA-Public Use
  Company Number: CN-SANOFI-AVENTIS-2010SA029515

PATIENT
  Age: 87 Year
  Sex: Male

DRUGS (1)
  1. ZOLPIDEM [Suspect]
     Indication: DRUG USE FOR UNKNOWN INDICATION
     Route: 048
     Dates: start: 20100306, end: 20100306

REACTIONS (3)
  - CONTRAINDICATION TO MEDICAL TREATMENT [None]
  - RESPIRATORY FAILURE [None]
  - SOMNOLENCE [None]
